FAERS Safety Report 4288618-0 (Version None)
Quarter: 2004Q1

REPORT INFORMATION
  Report Type: 
  Country: None (occurrence: None)
  Receive Date: 20040209
  Receipt Date: 20040127
  Transmission Date: 20041129
  Serious: Yes (Other)
  Sender: FDA-Public Use
  Company Number: GB-GLAXOSMITHKLINE-B0321161A

PATIENT
  Age: 71 Year
  Sex: Female

DRUGS (2)
  1. TOPOTECAN [Suspect]
     Indication: OVARIAN CANCER
     Dosage: 1.25MGM2 SEE DOSAGE TEXT
     Route: 042
  2. CARBOPLATIN [Suspect]
     Indication: OVARIAN CANCER
     Dosage: 1430MG CUMULATIVE DOSE
     Route: 042

REACTIONS (3)
  - CHILLS [None]
  - DYSPNOEA [None]
  - LETHARGY [None]
